FAERS Safety Report 7167681-3 (Version None)
Quarter: 2010Q4

REPORT INFORMATION
  Report Type: 
  Country: None (occurrence: None)
  Receive Date: 20101216
  Receipt Date: 20100723
  Transmission Date: 20110411
  Serious: No
  Sender: FDA-Public Use
  Company Number: A0872090A

PATIENT
  Age: 50 Year
  Sex: Male

DRUGS (2)
  1. COMMIT [Suspect]
  2. NICOTINE [Suspect]
     Dates: start: 20100721, end: 20100723

REACTIONS (5)
  - DRUG ADMINISTRATION ERROR [None]
  - EUPHORIC MOOD [None]
  - FEELING HOT [None]
  - HYPERHIDROSIS [None]
  - NICOTINE DEPENDENCE [None]
